FAERS Safety Report 19903571 (Version 1)
Quarter: 2021Q4

REPORT INFORMATION
  Report Type: Spontaneous
  Country: NO (occurrence: NO)
  Receive Date: 20211001
  Receipt Date: 20211001
  Transmission Date: 20220303
  Serious: Yes (Hospitalization)
  Sender: FDA-Public Use
  Company Number: NO-ABBVIE-21K-122-4098880-00

PATIENT
  Age: 59 Year
  Sex: Female

DRUGS (2)
  1. CARBIDOPA\LEVODOPA [Suspect]
     Active Substance: CARBIDOPA\LEVODOPA
     Indication: Product used for unknown indication
     Route: 050
     Dates: start: 2020
  2. CARBIDOPA\LEVODOPA [Suspect]
     Active Substance: CARBIDOPA\LEVODOPA

REACTIONS (7)
  - Discomfort [Unknown]
  - Embedded device [Unknown]
  - Dehydration [Unknown]
  - Pain [Unknown]
  - Hyperhidrosis [Unknown]
  - Stoma site pain [Unknown]
  - Stoma site induration [Unknown]

NARRATIVE: CASE EVENT DATE: 20210923
